FAERS Safety Report 9278366 (Version 1)
Quarter: 2013Q2

REPORT INFORMATION
  Report Type: Spontaneous
  Country: US (occurrence: US)
  Receive Date: 20130508
  Receipt Date: 20130508
  Transmission Date: 20140414
  Serious: Yes (Other)
  Sender: FDA-Public Use
  Company Number: US-PFIZER INC-2013136457

PATIENT
  Age: 84 Year
  Sex: Male

DRUGS (9)
  1. RISPERIDONE [Suspect]
     Indication: DEPRESSION
     Dosage: 1 MG, 2X/DAY
     Dates: start: 201010
  2. SERTRALINE HCL [Suspect]
     Indication: DEPRESSION
     Dosage: 50 MG DAILY
     Dates: start: 200809
  3. SINEMET [Suspect]
     Indication: PARKINSON^S DISEASE
     Dosage: 25/100 MG
  4. LAMOTRIGINE [Concomitant]
     Dosage: UNK
  5. HYDROCHLOROTHIAZIDE [Concomitant]
     Dosage: UNK
  6. LISINOPRIL [Concomitant]
     Dosage: UNK
  7. ATORVASTATIN [Concomitant]
  8. IPRATROPIUM BROMIDE [Concomitant]
  9. FLUTICASONE [Concomitant]
     Dosage: UNK

REACTIONS (12)
  - Muscle rigidity [Recovering/Resolving]
  - Bradykinesia [Recovering/Resolving]
  - Gait disturbance [Recovering/Resolving]
  - Balance disorder [Recovering/Resolving]
  - Drooling [Recovering/Resolving]
  - Dysphonia [Recovering/Resolving]
  - Fatigue [Recovering/Resolving]
  - Movement disorder [Recovering/Resolving]
  - Posture abnormal [Recovering/Resolving]
  - Somnolence [Recovering/Resolving]
  - Parkinsonism [Recovering/Resolving]
  - Kyphosis [Recovering/Resolving]
